FAERS Safety Report 22279905 (Version 1)
Quarter: 2023Q2

REPORT INFORMATION
  Report Type: Report from Study
  Country: US (occurrence: US)
  Receive Date: 20230503
  Receipt Date: 20230503
  Transmission Date: 20230721
  Serious: Yes (Hospitalization)
  Sender: FDA-Public Use
  Company Number: US-MYLANLABS-2023M1046194

PATIENT
  Age: 66 Year
  Sex: Male
  Weight: 80.7 kg

DRUGS (1)
  1. CLOZAPINE [Suspect]
     Active Substance: CLOZAPINE
     Indication: Psychotic disorder
     Dosage: 200 MILLIGRAM, QD
     Route: 065
     Dates: start: 20221031

REACTIONS (2)
  - Rhinovirus infection [Unknown]
  - Aspiration [Unknown]

NARRATIVE: CASE EVENT DATE: 20230302
